FAERS Safety Report 7460174-5 (Version None)
Quarter: 2011Q2

REPORT INFORMATION
  Report Type: 
  Country: None (occurrence: None)
  Receive Date: 20110505
  Receipt Date: 20110422
  Transmission Date: 20111010
  Serious: Yes (Hospitalization)
  Sender: FDA-Public Use
  Company Number: TR-CELGENEUS-161-21880-11042866

PATIENT
  Sex: Female

DRUGS (1)
  1. REVLIMID [Suspect]
     Indication: MULTIPLE MYELOMA
     Route: 048
     Dates: start: 20110401, end: 20110412

REACTIONS (2)
  - VASCULITIS [None]
  - DERMATITIS EXFOLIATIVE [None]
